FAERS Safety Report 11302019 (Version 1)
Quarter: 2015Q3

REPORT INFORMATION
  Report Type: Spontaneous
  Country: US (occurrence: US)
  Receive Date: 20150722
  Receipt Date: 20150722
  Transmission Date: 20151125
  Serious: Yes (Hospitalization, Other)
  Sender: FDA-Public Use
  Company Number: US-ELI_LILLY_AND_COMPANY-US200807001297

PATIENT
  Age: 65 Year
  Sex: Male

DRUGS (1)
  1. EVISTA [Suspect]
     Active Substance: RALOXIFENE HYDROCHLORIDE
     Indication: OSTEOPENIA
     Dosage: 60 MG, UNK
     Dates: start: 20070713, end: 20080305

REACTIONS (4)
  - Inflammation [Unknown]
  - Erythema [Unknown]
  - Pain in extremity [Unknown]
  - Venous thrombosis [Recovering/Resolving]

NARRATIVE: CASE EVENT DATE: 200807
